FAERS Safety Report 4934855-9 (Version None)
Quarter: 2006Q1

REPORT INFORMATION
  Report Type: 
  Country: None (occurrence: None)
  Receive Date: 20060302
  Receipt Date: 20060217
  Transmission Date: 20060701
  Serious: Yes (Death)
  Sender: FDA-Public Use
  Company Number: 2006025366

PATIENT
  Age: 78 Year
  Sex: Female

DRUGS (2)
  1. VFEND [Suspect]
     Indication: CANDIDIASIS
     Dosage: 400 MG, ORAL
     Route: 048
     Dates: start: 20060210
  2. FUNGIZONE [Concomitant]

REACTIONS (2)
  - ANOREXIA [None]
  - PULMONARY ALVEOLAR HAEMORRHAGE [None]
